FAERS Safety Report 11501871 (Version 1)
Quarter: 2015Q3

REPORT INFORMATION
  Report Type: Spontaneous
  Country: US (occurrence: US)
  Receive Date: 20150914
  Receipt Date: 20150914
  Transmission Date: 20151125
  Serious: Yes (Other)
  Sender: FDA-Public Use
  Company Number: US-SA-2015SA138110

PATIENT
  Sex: Female

DRUGS (1)
  1. TAXOTERE [Suspect]
     Active Substance: DOCETAXEL
     Route: 065

REACTIONS (7)
  - Breast cancer [Unknown]
  - Metastases to central nervous system [Unknown]
  - Breast cancer metastatic [Unknown]
  - Headache [Unknown]
  - Metastases to liver [Unknown]
  - Fatigue [Unknown]
  - Clavicle fracture [Unknown]
